FAERS Safety Report 9228106 (Version 3)
Quarter: 2013Q2

REPORT INFORMATION
  Report Type: Spontaneous
  Country: DE (occurrence: None)
  Receive Date: 20130410
  Receipt Date: 20130523
  Transmission Date: 20140414
  Serious: Yes (Other)
  Sender: FDA-Public Use
  Company Number: 1304-467

PATIENT
  Age: 80 Year
  Sex: Male

DRUGS (2)
  1. EYLEA [Suspect]
     Indication: AGE-RELATED MACULAR DEGENERATION
     Dosage: 2MG, INTRAOCULAR
     Dates: start: 20130130, end: 20130130
  2. HARNAL (TAMSULOSIN HYDROCHLORIDE) (TABLET) [Concomitant]

REACTIONS (1)
  - Gastrointestinal haemorrhage [None]
